FAERS Safety Report 19791435 (Version 1)
Quarter: 2021Q3

REPORT INFORMATION
  Report Type: Spontaneous
  Country: US (occurrence: US)
  Receive Date: 20210906
  Receipt Date: 20210906
  Transmission Date: 20211014
  Serious: Yes (Death, Hospitalization)
  Sender: FDA-Public Use
  Company Number: US-JNJFOC-20210849557

PATIENT
  Age: 54 Year
  Sex: Female
  Weight: 63 kg

DRUGS (8)
  1. PREMARIN [Concomitant]
     Active Substance: ESTROGENS, CONJUGATED
     Indication: PRODUCT USED FOR UNKNOWN INDICATION
     Dosage: 0.625 MG ONCE A DAY FROM UNSPECIFIED MONTHS
     Route: 065
  2. TYLENOL PM [Suspect]
     Active Substance: ACETAMINOPHEN\DIPHENHYDRAMINE
     Indication: SUICIDE ATTEMPT
     Dosage: 7150 MG ONCE AT 09:30
     Route: 048
     Dates: start: 20000109, end: 20000109
  3. NEURONTIN [Concomitant]
     Active Substance: GABAPENTIN
     Indication: PRODUCT USED FOR UNKNOWN INDICATION
     Dosage: 300 MG ONCE A DAY FROM UNSPECIFIED MONTHS
     Route: 065
  4. LORAZEPAM. [Concomitant]
     Active Substance: LORAZEPAM
     Indication: PRODUCT USED FOR UNKNOWN INDICATION
     Dosage: 0.5 MG ONCE A DAY FROM UNSPECIFIED MONTHS
     Route: 065
  5. CARBAMAZEPINE. [Concomitant]
     Active Substance: CARBAMAZEPINE
     Indication: PRODUCT USED FOR UNKNOWN INDICATION
     Dosage: 200 MG ONCE A DAY FROM UNSPECIFIED MONTHS
     Route: 065
  6. ZYPREXA [Concomitant]
     Active Substance: OLANZAPINE
     Indication: PRODUCT USED FOR UNKNOWN INDICATION
     Dosage: 10 MG ONCE A DAY FROM UNSPECIFIED MONTHS
     Route: 065
     Dates: end: 20000109
  7. LEVOXYL [Concomitant]
     Active Substance: LEVOTHYROXINE SODIUM
     Indication: PRODUCT USED FOR UNKNOWN INDICATION
     Dosage: 0.088 MG ONCE A DAY FROM UNSPECIFIED MONTHS
     Route: 065
  8. MEDROXYPROGESTERONE [Concomitant]
     Active Substance: MEDROXYPROGESTERONE
     Indication: PRODUCT USED FOR UNKNOWN INDICATION
     Dosage: 0.25 MG ONCE A DAY FROM UNSPECIFIED MONTHS
     Route: 065

REACTIONS (11)
  - Completed suicide [Fatal]
  - Brain herniation [Fatal]
  - White blood cell count increased [Fatal]
  - Heart rate increased [Fatal]
  - Haematocrit decreased [Fatal]
  - Acute hepatic failure [Fatal]
  - Haemoglobin decreased [Fatal]
  - Platelet count decreased [Fatal]
  - Acute kidney injury [Fatal]
  - PO2 decreased [Fatal]
  - Intentional overdose [Fatal]

NARRATIVE: CASE EVENT DATE: 20000109
